FAERS Safety Report 13032276 (Version 1)
Quarter: 2016Q4

REPORT INFORMATION
  Report Type: Spontaneous
  Country: US (occurrence: US)
  Receive Date: 20161215
  Receipt Date: 20161215
  Transmission Date: 20170207
  Serious: No
  Sender: FDA-Public Use
  Company Number: US-ENDO PHARMACEUTICALS INC.-2016-001743

PATIENT
  Sex: Female
  Weight: 56.75 kg

DRUGS (5)
  1. CEFALEXIN [Concomitant]
     Active Substance: CEPHALEXIN
     Indication: URINARY TRACT INFECTION
  2. ALPRAZOLAM TABLETS 1 MG [Concomitant]
     Active Substance: ALPRAZOLAM
     Indication: ANXIETY
  3. ALPRAZOLAM TABLETS 1 MG [Concomitant]
     Active Substance: ALPRAZOLAM
     Indication: INSOMNIA
  4. PENICILLIN V POTASSIUM TABLETS 500 MG [Suspect]
     Active Substance: PENICILLIN V POTASSIUM
     Indication: PRODUCT USED FOR UNKNOWN INDICATION
     Route: 065
  5. VERAPAMIL ER [Concomitant]
     Active Substance: VERAPAMIL HYDROCHLORIDE
     Indication: BLOOD PRESSURE MANAGEMENT

REACTIONS (1)
  - Drug hypersensitivity [Unknown]
